FAERS Safety Report 11059517 (Version 2)
Quarter: 2015Q3

REPORT INFORMATION
  Report Type: Spontaneous
  Country: IT (occurrence: IT)
  Receive Date: 20150423
  Receipt Date: 20150930
  Transmission Date: 20151125
  Serious: Yes (Hospitalization)
  Sender: FDA-Public Use
  Company Number: IT-PFIZER INC-2015136617

PATIENT
  Age: 18 Year
  Sex: Female

DRUGS (8)
  1. EPARINA VISTER [Concomitant]
  2. MORPHINE HYDROCHLORIDE [Concomitant]
     Active Substance: MORPHINE HYDROCHLORIDE
  3. AURANTIN [Suspect]
     Active Substance: PHENYTOIN SODIUM
     Indication: POST-TRAUMATIC EPILEPSY
     Dosage: 2 DF, DAILY
     Route: 041
     Dates: start: 20150413, end: 20150415
  4. FIDATO [Concomitant]
     Active Substance: CEFTRIAXONE SODIUM
  5. DIPRIVAN [Concomitant]
     Active Substance: PROPOFOL
  6. LASIX [Concomitant]
     Active Substance: FUROSEMIDE
  7. DALACIN C FOSFATO [Suspect]
     Active Substance: CLINDAMYCIN PHOSPHATE
     Dosage: 2 DF, DAILY
     Route: 041
     Dates: start: 20150413, end: 20150415
  8. FENTANEST /00174602/ [Concomitant]

REACTIONS (2)
  - Hypotension [Recovered/Resolved]
  - Urticaria [Recovered/Resolved]

NARRATIVE: CASE EVENT DATE: 20150413
